FAERS Safety Report 9852838 (Version 1)
Quarter: 2014Q1

REPORT INFORMATION
  Report Type: Spontaneous
  Country: US (occurrence: None)
  Receive Date: 20140127
  Receipt Date: 20140127
  Transmission Date: 20141002
  Serious: Yes (Death)
  Sender: FDA-Public Use
  Company Number: 2014US00055

PATIENT
  Age: 74 Year
  Sex: Male

DRUGS (2)
  1. GEMCITABINE (GEMCITABINE) INJECTION [Suspect]
     Indication: GASTROOESOPHAGEAL CANCER
     Dosage: 10 MG/M2/MIN, DAY 1 AND 8 OF 21 DAY CYCLE, IV DRIP
     Route: 041
  2. TRIAPINE [Suspect]
     Indication: GASTROOESOPHAGEAL CANCER
     Dosage: 120 MG, OVER 24 HRS. (ARM A), IV DRIP
     Route: 041

REACTIONS (1)
  - Sudden death [None]
